FAERS Safety Report 22150436 (Version 1)
Quarter: 2023Q1

REPORT INFORMATION
  Report Type: Report from Study
  Country: BR (occurrence: BR)
  Receive Date: 20230329
  Receipt Date: 20230329
  Transmission Date: 20230417
  Serious: Yes (Other)
  Sender: FDA-Public Use
  Company Number: BR-UCBSA-2023012778

PATIENT
  Sex: Male

DRUGS (3)
  1. LEVETIRACETAM [Suspect]
     Active Substance: LEVETIRACETAM
     Indication: Epilepsy
     Dosage: 500 MILLIGRAM,USES 3 TIMES A DAY
     Dates: start: 20220228
  2. PRIMID [Concomitant]
     Indication: Epilepsy
     Dosage: 250 MILLIGRAM, 1 TABLET EVERY 8 HOURS
     Route: 048
  3. PHENOBARBITAL [Concomitant]
     Active Substance: PHENOBARBITAL
     Indication: Epilepsy
     Dosage: 100 MILLIGRAM, 2X/DAY (BID)
     Route: 048

REACTIONS (4)
  - Seizure [Recovering/Resolving]
  - Fall [Unknown]
  - Ligament sprain [Unknown]
  - Off label use [Unknown]
